FAERS Safety Report 8322926-9 (Version None)
Quarter: 2012Q2

REPORT INFORMATION
  Report Type: 
  Country: None (occurrence: None)
  Receive Date: 20120430
  Receipt Date: 20100622
  Transmission Date: 20120825
  Serious: Yes (Hospitalization)
  Sender: FDA-Public Use
  Company Number: PHHY2010AU093954

PATIENT
  Sex: Male

DRUGS (1)
  1. ZOLEDRONOC ACID [Suspect]
     Dosage: 5 MG, FIRST INFUSION
     Route: 042
     Dates: start: 20090722

REACTIONS (1)
  - VITAMIN D DECREASED [None]
